FAERS Safety Report 5254609-6 (Version None)
Quarter: 2007Q1

REPORT INFORMATION
  Report Type: 
  Country: None (occurrence: None)
  Receive Date: 20070302
  Receipt Date: 20070220
  Transmission Date: 20070707
  Serious: Yes (Other)
  Sender: FDA-Public Use
  Company Number: US-PFIZER INC-2007014299

PATIENT
  Age: 48 Year
  Sex: Male

DRUGS (2)
  1. CHANTIX [Suspect]
  2. EFFEXOR [Concomitant]

REACTIONS (2)
  - THROAT TIGHTNESS [None]
  - VOMITING [None]
